FAERS Safety Report 9054824 (Version 1)
Quarter: 2013Q1

REPORT INFORMATION
  Report Type: Spontaneous
  Country: US (occurrence: US)
  Receive Date: 20130208
  Receipt Date: 20130208
  Transmission Date: 20140127
  Serious: Yes (Hospitalization)
  Sender: FDA-Public Use
  Company Number: US-BAYER-2013-016498

PATIENT
  Age: 31 Year
  Sex: Female

DRUGS (15)
  1. YAZ [Suspect]
  2. YASMIN [Suspect]
  3. DURAGESIC PATCH 25 [Concomitant]
     Dosage: ONE PATCH DAILY
  4. CELEBREX [Concomitant]
     Dosage: 200 MG, BID
  5. FOLIC ACID [Concomitant]
     Dosage: 1 MG, DAILY
  6. PHENERGAN [PROMETHAZINE] [Concomitant]
     Dosage: 25 MG, TID
  7. NEXIUM [Concomitant]
     Dosage: 40 MG, DAILY
  8. TRAZODONE [Concomitant]
     Dosage: 100 MG, HS
  9. SEROQUEL [Concomitant]
     Dosage: 100 MG, HS
  10. ABILIFY [Concomitant]
     Dosage: 20 MG, DAILY
  11. ADVAIR DISKUS 250/50 [Concomitant]
     Dosage: ONE PUFF TWICE A DAY
  12. PROAIR HFA [Concomitant]
     Dosage: 2 PUFFS FOUR TIMES A DAY
  13. FLEXERIL [Concomitant]
     Dosage: 10 MG, DAILY
  14. CLARITIN [Concomitant]
     Dosage: 10 MG, DAILY
  15. NASONEX [Concomitant]
     Dosage: AS NEEDED AT NIGHT

REACTIONS (1)
  - Deep vein thrombosis [None]
